FAERS Safety Report 13246046 (Version 2)
Quarter: 2017Q1

REPORT INFORMATION
  Report Type: Spontaneous
  Country: US (occurrence: US)
  Receive Date: 20170217
  Receipt Date: 20170324
  Transmission Date: 20170428
  Serious: Yes (Other)
  Sender: FDA-Public Use
  Company Number: US-BRISTOL-MYERS SQUIBB COMPANY-BMS-2017-011760

PATIENT
  Age: 50 Year
  Sex: Female

DRUGS (1)
  1. OPDIVO [Suspect]
     Active Substance: NIVOLUMAB
     Indication: NON-SMALL CELL LUNG CANCER
     Dosage: 136 MG, UNK
     Route: 042
     Dates: start: 20140127, end: 20170111

REACTIONS (3)
  - Rash [Unknown]
  - Thrombocytopenia [Unknown]
  - Petechiae [Unknown]

NARRATIVE: CASE EVENT DATE: 20170208
